FAERS Safety Report 4345814-1 (Version None)
Quarter: 2004Q2

REPORT INFORMATION
  Report Type: 
  Country: None (occurrence: None)
  Receive Date: 20040424
  Receipt Date: 20040420
  Transmission Date: 20050107
  Serious: Yes (Hospitalization)
  Sender: FDA-Public Use
  Company Number: DE-MERCK-0404DEU00107

PATIENT
  Age: 23 Year
  Sex: Female
  Weight: 120 kg

DRUGS (4)
  1. BECLOMETHASONE DIPROPIONATE [Concomitant]
     Indication: ASTHMA
     Route: 055
  2. FENOTEROL HYDROBROMIDE [Concomitant]
     Indication: ASTHMA
     Route: 055
     Dates: start: 19950101
  3. FORMOTEROL FUMARATE [Concomitant]
     Indication: ASTHMA
     Route: 055
     Dates: start: 19981201
  4. SINGULAIR [Suspect]
     Indication: ASTHMA
     Route: 048
     Dates: start: 19990601, end: 20030301

REACTIONS (1)
  - BENIGN HEPATIC NEOPLASM [None]
